FAERS Safety Report 5277484-2 (Version None)
Quarter: 2007Q1

REPORT INFORMATION
  Report Type: 
  Country: None (occurrence: None)
  Receive Date: 20070327
  Receipt Date: 20070321
  Transmission Date: 20070707
  Serious: Yes (Other)
  Sender: FDA-Public Use
  Company Number: BR-JNJFOC-20070300784

PATIENT
  Sex: Male

DRUGS (3)
  1. EXTRA STRENGTH TYLENOL [Suspect]
     Indication: PYREXIA
     Route: 048
  2. EXTRA STRENGTH TYLENOL [Suspect]
     Indication: MALAISE
     Route: 048
  3. YELLOW FEVER VACCINE [Concomitant]

REACTIONS (3)
  - DYSPNOEA [None]
  - EYELID OEDEMA [None]
  - PRURITUS [None]
